FAERS Safety Report 4832375-3 (Version None)
Quarter: 2005Q4

REPORT INFORMATION
  Report Type: 
  Country: None (occurrence: None)
  Receive Date: 20051117
  Receipt Date: 20051117
  Transmission Date: 20060501
  Serious: Yes (Hospitalization)
  Sender: FDA-Public Use
  Company Number: None

PATIENT
  Sex: Male
  Weight: 96.1 kg

DRUGS (8)
  1. GLIADEL [Suspect]
     Indication: GLIOBLASTOMA MULTIFORME
     Dosage: 7.7 MG PER WAFER - MAX OF 8
     Dates: start: 20050714
  2. O6-BENZYLGUANINE (O6BG) [Suspect]
     Indication: GLIOBLASTOMA MULTIFORME
     Dosage: 30 MG/M2 INFUSION X 5 DAYS
     Dates: start: 20050714, end: 20050718
  3. CARBATROL [Concomitant]
  4. DECDRON [Concomitant]
  5. EFFEXOR XR [Concomitant]
  6. MULTI-VITAMIN [Concomitant]
  7. PRILOSEC [Concomitant]
  8. DARVOCET-N 100 [Concomitant]

REACTIONS (11)
  - ACNE [None]
  - ASTHENIA [None]
  - CONTUSION [None]
  - FATIGUE [None]
  - FOOD CRAVING [None]
  - HEADACHE [None]
  - HYPERPHAGIA [None]
  - INTERNATIONAL NORMALISED RATIO INCREASED [None]
  - MUSCULAR WEAKNESS [None]
  - PROTHROMBIN TIME PROLONGED [None]
  - VISION BLURRED [None]
